FAERS Safety Report 7515018-X (Version None)
Quarter: 2011Q2

REPORT INFORMATION
  Report Type: 
  Country: None (occurrence: None)
  Receive Date: 20110601
  Receipt Date: 20110518
  Transmission Date: 20111010
  Serious: Yes (Other)
  Sender: FDA-Public Use
  Company Number: PHHY2011JP30720

PATIENT
  Age: 62 Year
  Sex: Female

DRUGS (7)
  1. ATENOLOL [Concomitant]
     Dosage: 50 MG, UNK
     Route: 048
  2. CRESTOR [Concomitant]
     Dosage: 2.5 MG, UNK
     Route: 048
  3. GLYBURIDE [Concomitant]
     Dosage: 5 MG, UNK
     Route: 048
  4. METFFORMIN HYDROCHLORIDE [Concomitant]
     Dosage: 750 MG, UNK
     Route: 048
  5. BONALON [Concomitant]
     Dosage: 1 DF, UNK
     Route: 048
  6. DIOVAN HCT [Suspect]
     Indication: HYPERTENSION
     Dosage: 1 DF, DAILY
     Route: 048
     Dates: start: 20100915, end: 20110308
  7. ATELEC [Concomitant]
     Dosage: 10 MG, UNK
     Route: 048

REACTIONS (2)
  - RASH [None]
  - PHOTOSENSITIVITY REACTION [None]
